FAERS Safety Report 23616923 (Version 1)
Quarter: 2024Q1

REPORT INFORMATION
  Report Type: Spontaneous
  Country: US (occurrence: None)
  Receive Date: 20240309
  Receipt Date: 20240309
  Transmission Date: 20240409
  Serious: Yes (Hospitalization)
  Sender: FDA-Public Use
  Company Number: None

PATIENT
  Sex: Female
  Weight: 89.3 kg

DRUGS (2)
  1. PEMBROLIZUMAB [Suspect]
     Active Substance: PEMBROLIZUMAB
  2. ALIMTA [Concomitant]
     Active Substance: PEMETREXED DISODIUM

REACTIONS (5)
  - Pyrexia [None]
  - Dyspnoea [None]
  - Diarrhoea [None]
  - Pneumonitis [None]
  - Respiratory failure [None]

NARRATIVE: CASE EVENT DATE: 20220803
